FAERS Safety Report 7676853-0 (Version None)
Quarter: 2011Q3

REPORT INFORMATION
  Report Type: 
  Country: None (occurrence: None)
  Receive Date: 20110811
  Receipt Date: 20110808
  Transmission Date: 20111222
  Serious: Yes (Other)
  Sender: FDA-Public Use
  Company Number: US-PFIZER INC-2010141008

PATIENT
  Sex: Female
  Weight: 72.562 kg

DRUGS (5)
  1. XANAX [Suspect]
     Indication: NAUSEA
     Dosage: 0.25 MG, 2X/DAY
     Route: 048
     Dates: start: 20110501, end: 20110101
  2. XANAX [Suspect]
     Dosage: 3/4 TABLET MORNING, 1/4 TABLET AT DINNER, 1 TABLET AT BEDTIME
     Route: 048
     Dates: start: 20110101
  3. ATIVAN [Suspect]
     Indication: SLEEP DISORDER
     Route: 048
  4. XANAX [Suspect]
     Indication: ANXIETY
     Dosage: 0.25 MG, 2X/DAY
     Route: 048
     Dates: start: 20080101
  5. PREVACID [Concomitant]
     Dosage: UNK

REACTIONS (8)
  - DIZZINESS [None]
  - WITHDRAWAL SYNDROME [None]
  - AGGRESSION [None]
  - TREMOR [None]
  - GASTROINTESTINAL DISORDER [None]
  - DYSPNOEA [None]
  - FEELING ABNORMAL [None]
  - ANXIETY [None]
